FAERS Safety Report 7582319-9 (Version None)
Quarter: 2011Q2

REPORT INFORMATION
  Report Type: 
  Country: None (occurrence: None)
  Receive Date: 20110527
  Receipt Date: 20110127
  Transmission Date: 20111010
  Serious: Yes (Hospitalization, Other)
  Sender: FDA-Public Use
  Company Number: US200903003319

PATIENT
  Age: 53 Year
  Sex: Female
  Weight: 81.6 kg

DRUGS (8)
  1. EXENATIDE PEN, DISPOSABLE DEVICE (EXENATIDE PEN) PEN, DISPOSABLE [Concomitant]
  2. LOTREL [Concomitant]
  3. BYETTA [Suspect]
     Dates: start: 20051005, end: 20071101
  4. ELAVIL [Concomitant]
  5. LEVEMIR [Concomitant]
  6. VICODIN [Concomitant]
  7. LANTUS [Concomitant]
  8. CRESTOR [Concomitant]

REACTIONS (6)
  - ABDOMINAL DISCOMFORT [None]
  - NAUSEA [None]
  - RENAL INJURY [None]
  - BILE DUCT STONE [None]
  - PANCREATITIS [None]
  - OFF LABEL USE [None]
